FAERS Safety Report 15326343 (Version 6)
Quarter: 2018Q4

REPORT INFORMATION
  Report Type: Spontaneous
  Country: US (occurrence: US)
  Receive Date: 20180828
  Receipt Date: 20181016
  Transmission Date: 20190204
  Serious: Yes (Other)
  Sender: FDA-Public Use
  Company Number: US-SA-2018SA236758

PATIENT
  Age: 72 Year
  Sex: Female
  Weight: 154 kg

DRUGS (4)
  1. LANTUS [Suspect]
     Active Substance: INSULIN GLARGINE
     Indication: TYPE 2 DIABETES MELLITUS
     Dosage: 35 IU, QD
  2. LISINOPRIL. [Concomitant]
     Active Substance: LISINOPRIL
     Indication: HYPERTENSION
     Dosage: 20 MG, QD
  3. METFORMINE [METFORMIN] [Concomitant]
     Active Substance: METFORMIN HYDROCHLORIDE
     Indication: DIABETES MELLITUS
     Dosage: 750 MG, BID
  4. LEVOTHYROXINE. [Concomitant]
     Active Substance: LEVOTHYROXINE
     Indication: BLOOD THYROID STIMULATING HORMONE DECREASED
     Dosage: 88 MCG, QD

REACTIONS (6)
  - Cataract [Recovered/Resolved]
  - Blood glucose abnormal [Unknown]
  - Pneumonia [Recovered/Resolved]
  - Blood glucose increased [Unknown]
  - Trigger finger [Recovered/Resolved]
  - Astigmatism [Recovered/Resolved]

NARRATIVE: CASE EVENT DATE: 20180815
